FAERS Safety Report 6512051 (Version 4)
Quarter: 2013Q2

REPORT INFORMATION
  Report Type: Report from Study
  Country: CN (occurrence: CN)
  Receive Date: 20071221
  Receipt Date: 20130619
  Transmission Date: 20140414
  Serious: Yes (Hospitalization)
  Sender: FDA-Public Use
  Company Number: PHHO2007CN20134

PATIENT
  Age: 79 Year
  Sex: Male
  Weight: 85 kg

DRUGS (4)
  1. ZOLEDRONATE [Suspect]
     Indication: PROSTATE CANCER
     Dosage: 4MG EVERY 4 WEEKS
     Route: 042
     Dates: start: 20070711, end: 20071107
  2. ZOLEDRONATE [Suspect]
     Dosage: 4MG EVERY 4 WEEKS
     Route: 042
  3. CALCIUM [Concomitant]
  4. VITAMIN D [Concomitant]

REACTIONS (7)
  - Coronary artery disease [Recovering/Resolving]
  - Bundle branch block right [Recovered/Resolved]
  - Angina pectoris [Recovering/Resolving]
  - Chest pain [Recovering/Resolving]
  - Chest discomfort [Recovering/Resolving]
  - Hypertension [Unknown]
  - Diabetes mellitus [Unknown]
